FAERS Safety Report 18866916 (Version 2)
Quarter: 2021Q1

REPORT INFORMATION
  Report Type: Spontaneous
  Country: US (occurrence: US)
  Receive Date: 20210209
  Receipt Date: 20210216
  Transmission Date: 20210420
  Serious: Yes (Hospitalization, Other)
  Sender: FDA-Public Use
  Company Number: US-PFIZER INC-2021114809

PATIENT
  Sex: Male

DRUGS (1)
  1. HEPARIN SODIUM. [Suspect]
     Active Substance: HEPARIN SODIUM
     Dosage: UNK

REACTIONS (5)
  - Heparin-induced thrombocytopenia [Recovering/Resolving]
  - Atrial thrombosis [Recovering/Resolving]
  - Heparin-induced thrombocytopenia test positive [Recovering/Resolving]
  - Pulmonary embolism [Recovering/Resolving]
  - Embolism venous [Recovering/Resolving]
